FAERS Safety Report 7832983-1 (Version None)
Quarter: 2011Q4

REPORT INFORMATION
  Report Type: 
  Country: None (occurrence: None)
  Receive Date: 20111024
  Receipt Date: 20111012
  Transmission Date: 20120403
  Serious: Yes (Hospitalization)
  Sender: FDA-Public Use
  Company Number: CA-JNJFOC-20111006159

PATIENT
  Age: 18 Year

DRUGS (2)
  1. PREDNISONE [Concomitant]
     Route: 042
  2. REMICADE [Suspect]
     Indication: PRODUCT USED FOR UNKNOWN INDICATION
     Route: 042

REACTIONS (4)
  - HAEMORRHAGE [None]
  - CONDITION AGGRAVATED [None]
  - MUCOUS STOOLS [None]
  - DIARRHOEA [None]
